FAERS Safety Report 6312880-3 (Version None)
Quarter: 2009Q3

REPORT INFORMATION
  Report Type: 
  Country: None (occurrence: None)
  Receive Date: 20090818
  Receipt Date: 20090803
  Transmission Date: 20100115
  Serious: Yes (Hospitalization)
  Sender: FDA-Public Use
  Company Number: FR-JNJFOC-20090804694

PATIENT
  Sex: Male

DRUGS (14)
  1. IXPRIM [Suspect]
     Route: 048
  2. IXPRIM [Suspect]
     Indication: RIB FRACTURE
     Route: 048
  3. CONTRAMAL [Suspect]
     Indication: RIB FRACTURE
     Route: 042
  4. FLUINDIONE [Interacting]
     Indication: DRUG USE FOR UNKNOWN INDICATION
     Route: 048
  5. DOLIPRANE [Concomitant]
     Route: 065
  6. NEXIUM [Concomitant]
     Route: 065
  7. NEBILOX [Concomitant]
     Route: 048
  8. KENZEN [Concomitant]
     Route: 048
  9. LANTUS [Concomitant]
     Route: 065
  10. APIDRA [Concomitant]
     Route: 065
  11. INEGY [Concomitant]
     Route: 048
  12. STAGID [Concomitant]
     Route: 048
  13. NOVONORM [Concomitant]
     Route: 048
  14. FERROUS SULFATE TAB [Concomitant]
     Route: 048

REACTIONS (5)
  - CONFUSIONAL STATE [None]
  - DRUG INTERACTION [None]
  - INTERNATIONAL NORMALISED RATIO INCREASED [None]
  - TUBULOINTERSTITIAL NEPHRITIS [None]
  - URINARY RETENTION [None]
